FAERS Safety Report 9049348 (Version 1)
Quarter: 2012Q4

REPORT INFORMATION
  Report Type: Spontaneous
  Country: FR (occurrence: None)
  Receive Date: 20120905
  Receipt Date: 20120905
  Transmission Date: 20130627
  Serious: Yes (Other)
  Sender: FDA-Public Use
  Company Number: 217621

PATIENT
  Sex: Female

DRUGS (5)
  1. DAIVOBET [Suspect]
     Indication: PSORIASIS
     Dosage: Topical
     Route: 061
  2. CLOBEX [Suspect]
     Indication: PSORIASIS
     Dosage: Topical
     Route: 061
  3. ENBREL (ETANERCEPT) [Concomitant]
  4. CORTANCYL (PREDNISONE) [Concomitant]
  5. DIFFU K (POTASSIUM CHLORIDE) [Concomitant]

REACTIONS (2)
  - Treatment failure [None]
  - Spontaneous haematoma [None]
